FAERS Safety Report 16078567 (Version 1)
Quarter: 2019Q1

REPORT INFORMATION
  Report Type: Spontaneous
  Country: JP (occurrence: JP)
  Receive Date: 20190315
  Receipt Date: 20190315
  Transmission Date: 20190418
  Serious: Yes (Hospitalization, Other)
  Sender: FDA-Public Use
  Company Number: JP-PFIZER INC-2019112291

PATIENT
  Age: 44 Year
  Sex: Male

DRUGS (4)
  1. NIFEDIPINE. [Suspect]
     Active Substance: NIFEDIPINE
     Indication: SUICIDAL IDEATION
     Dosage: 1160 MG, UNK
  2. CANDESARTAN. [Suspect]
     Active Substance: CANDESARTAN
     Indication: SUICIDAL IDEATION
     Dosage: 480 MG, UNK
  3. AMLODIPINE BESILATE [Suspect]
     Active Substance: AMLODIPINE BESYLATE
     Indication: SUICIDAL IDEATION
     Dosage: 150 MG, UNK
  4. CARTEOLOL [Suspect]
     Active Substance: CARTEOLOL
     Indication: SUICIDAL IDEATION
     Dosage: 200 MG, UNK

REACTIONS (3)
  - Intentional overdose [Unknown]
  - Shock [Recovered/Resolved]
  - Suicide attempt [Recovered/Resolved]
